FAERS Safety Report 5828083-2 (Version None)
Quarter: 2008Q3

REPORT INFORMATION
  Report Type: 
  Country: None (occurrence: None)
  Receive Date: 20080730
  Receipt Date: 20071025
  Transmission Date: 20090109
  Serious: No
  Sender: FDA-Public Use
  Company Number: A0689790A

PATIENT
  Age: 3 Month
  Sex: Female

DRUGS (1)
  1. ZANTAC [Suspect]
     Dosage: .75TSP TWICE PER DAY
     Route: 048
     Dates: start: 20071017, end: 20071021

REACTIONS (3)
  - FAECES PALE [None]
  - MEDICATION ERROR [None]
  - OVERDOSE [None]
